FAERS Safety Report 5152361-6 (Version None)
Quarter: 2006Q4

REPORT INFORMATION
  Report Type: 
  Country: None (occurrence: None)
  Receive Date: 20061116
  Receipt Date: 20061106
  Transmission Date: 20070319
  Serious: Yes (Hospitalization)
  Sender: FDA-Public Use
  Company Number: DE-ELI_LILLY_AND_COMPANY-DE200611002072

PATIENT
  Age: 44 Year
  Sex: Female
  Weight: 99.5 kg

DRUGS (12)
  1. ZYPREXA [Suspect]
     Indication: BIPOLAR DISORDER
     Dosage: 15 MG, DAILY (1/D)
     Route: 048
     Dates: start: 20060816, end: 20061011
  2. ZYPREXA [Interacting]
     Dosage: 10 MG, DAILY (1/D)
     Route: 048
     Dates: start: 20061012, end: 20061012
  3. ZYPREXA [Interacting]
     Dosage: 5 MG, DAILY (1/D)
     Route: 048
     Dates: start: 20061013
  4. CYMBALTA [Interacting]
     Indication: DEPRESSION
     Dosage: 60 MG, DAILY (1/D)
     Route: 048
     Dates: end: 20060817
  5. CYMBALTA [Interacting]
     Dosage: 120 MG, DAILY (1/D)
     Route: 048
     Dates: start: 20060818
  6. MIRTAZAPINE [Concomitant]
     Dosage: 45 MG, DAILY (1/D)
     Route: 048
     Dates: start: 20060816, end: 20060908
  7. MIRTAZAPINE [Concomitant]
     Dosage: 60 MG, DAILY (1/D)
     Route: 048
     Dates: start: 20060909
  8. NEURONTIN [Concomitant]
     Dosage: 1600 MG, DAILY (1/D)
     Route: 048
     Dates: end: 20061013
  9. CHLORALDURAT/NET/ [Concomitant]
     Dosage: 500 MG, DAILY (1/D)
     Route: 048
     Dates: start: 20060816
  10. PANTOZOL /GFR/ [Interacting]
     Dosage: 40 MG, DAILY (1/D)
     Route: 048
     Dates: start: 20060816
  11. ABILIFY [Concomitant]
     Dosage: 15 MG, DAILY (1/D)
     Route: 048
  12. LEVOTHYROXINE SODIUM [Concomitant]
     Dosage: 175 UG, DAILY (1/D)
     Route: 048
     Dates: start: 20060817

REACTIONS (9)
  - DEPRESSIVE SYMPTOM [None]
  - DRUG INTERACTION POTENTIATION [None]
  - INFERIORITY COMPLEX [None]
  - PERSONALITY DISORDER [None]
  - RESTLESSNESS [None]
  - SUICIDAL IDEATION [None]
  - TENSION [None]
  - URINARY RETENTION [None]
  - WEIGHT GAIN POOR [None]
